FAERS Safety Report 14311170 (Version 1)
Quarter: 2017Q4

REPORT INFORMATION
  Report Type: Spontaneous
  Country: US (occurrence: US)
  Receive Date: 20171221
  Receipt Date: 20171221
  Transmission Date: 20180321
  Serious: No
  Sender: FDA-Public Use
  Company Number: US-NOVEN PHARMACEUTICALS, INC.-US2016002769

PATIENT

DRUGS (5)
  1. MINIVELLE [Suspect]
     Active Substance: ESTRADIOL
     Indication: FEELING ABNORMAL
  2. MINIVELLE [Suspect]
     Active Substance: ESTRADIOL
     Indication: FATIGUE
     Dosage: 0.1 MG, UNKNOWN
     Route: 062
  3. MINIVELLE [Suspect]
     Active Substance: ESTRADIOL
     Indication: MENOPAUSAL SYMPTOMS
     Dosage: 0.1 MG, UNKNOWN
     Route: 062
     Dates: start: 2013
  4. MINIVELLE [Suspect]
     Active Substance: ESTRADIOL
     Indication: INSOMNIA
  5. PROGESTERONE. [Concomitant]
     Active Substance: PROGESTERONE

REACTIONS (5)
  - Drug administration error [Recovered/Resolved]
  - Off label use [Unknown]
  - No adverse event [Unknown]
  - Product quality issue [Recovered/Resolved]
  - Product adhesion issue [Not Recovered/Not Resolved]

NARRATIVE: CASE EVENT DATE: 2013
